FAERS Safety Report 25616590 (Version 1)
Quarter: 2025Q3

REPORT INFORMATION
  Report Type: Spontaneous
  Country: US (occurrence: US)
  Receive Date: 20250729
  Receipt Date: 20250729
  Transmission Date: 20251020
  Serious: No
  Sender: MYLAN
  Company Number: US-MYLANLABS-2025M1057416

PATIENT
  Sex: Male

DRUGS (6)
  1. LYRICA [Suspect]
     Active Substance: PREGABALIN
     Indication: Pain
  2. AMLODIPINE [Concomitant]
     Active Substance: AMLODIPINE BESYLATE
  3. LIDOCAINE [Concomitant]
     Active Substance: LIDOCAINE
  4. TADALAFIL [Concomitant]
     Active Substance: TADALAFIL
  5. VITAMIN B12 [Concomitant]
     Active Substance: CYANOCOBALAMIN
  6. AUBAGIO [Concomitant]
     Active Substance: TERIFLUNOMIDE

REACTIONS (1)
  - Drug ineffective for unapproved indication [Unknown]
